FAERS Safety Report 20990208 (Version 1)
Quarter: 2022Q2

REPORT INFORMATION
  Report Type: Spontaneous
  Country: ES (occurrence: ES)
  Receive Date: 20220622
  Receipt Date: 20220622
  Transmission Date: 20220720
  Serious: Yes (Other)
  Sender: FDA-Public Use
  Company Number: ES-STRIDES ARCOLAB LIMITED-2022SP007402

PATIENT

DRUGS (38)
  1. PREDNISOLONE [Suspect]
     Active Substance: PREDNISOLONE
     Indication: Acute lymphocytic leukaemia
     Dosage: UNK INDUCTION IA PHASE
     Route: 048
  2. PREDNISOLONE [Suspect]
     Active Substance: PREDNISOLONE
     Dosage: UNK (IV PUSH)
     Route: 042
  3. PREDNISOLONE [Suspect]
     Active Substance: PREDNISOLONE
     Dosage: UNK; INDUCTION IA PHASE
     Route: 037
  4. PREDNISOLONE [Suspect]
     Active Substance: PREDNISOLONE
     Dosage: UNK IB PHASE OF CHEMOTHERAPY
     Route: 037
  5. PREDNISOLONE [Suspect]
     Active Substance: PREDNISOLONE
     Dosage: UNK CONSOLIDATION PHASE OF CHEMOTHERAPY
     Route: 037
  6. PREDNISOLONE [Suspect]
     Active Substance: PREDNISOLONE
     Dosage: UNK  REINDUCTION PHASE OF CHEMOTHERAPY
     Route: 037
  7. PREDNISOLONE [Suspect]
     Active Substance: PREDNISOLONE
     Dosage: UNK  MAINTENANCE PHASE OF CHEMOTHERAPY
     Route: 037
  8. DOXORUBICIN [Suspect]
     Active Substance: DOXORUBICIN
     Indication: Acute lymphocytic leukaemia
     Dosage: UNK REINDUCTION PHASE; OVER 1 HOUR IV INFUSION
     Route: 042
  9. METHOTREXATE [Suspect]
     Active Substance: METHOTREXATE
     Indication: Acute lymphocytic leukaemia
     Dosage: UNK INDUCTION IA PHASE
     Route: 037
  10. METHOTREXATE [Suspect]
     Active Substance: METHOTREXATE
     Dosage: UNK INDUCTION IB PHASE
     Route: 037
  11. METHOTREXATE [Suspect]
     Active Substance: METHOTREXATE
     Dosage: UNK  OF IV INFUSION OF METHOTREXATE OVER 24 HOURS
     Route: 042
  12. METHOTREXATE [Suspect]
     Active Substance: METHOTREXATE
     Dosage: UNK CONSOLIDATION PHASE
     Route: 037
  13. METHOTREXATE [Suspect]
     Active Substance: METHOTREXATE
     Dosage: UNK REINDUCTION PHASE
     Route: 037
  14. METHOTREXATE [Suspect]
     Active Substance: METHOTREXATE
     Dosage: UNK; MAINTAINANCE PHASE
     Route: 048
  15. METHOTREXATE [Suspect]
     Active Substance: METHOTREXATE
     Dosage: UNK MAINTENANCE PHASE
     Route: 037
  16. METHOTREXATE [Suspect]
     Active Substance: METHOTREXATE
     Dosage: UNK; MAINTAINANCE PHASE
     Route: 037
  17. DEXAMETHASONE [Suspect]
     Active Substance: DEXAMETHASONE
     Indication: Acute lymphocytic leukaemia
     Dosage: UNK REINDUCTION PHASE
     Route: 048
  18. DEXAMETHASONE [Suspect]
     Active Substance: DEXAMETHASONE
     Dosage: UNK  REINDUCTION PHASE IV PUSH
     Route: 042
  19. VINCRISTINE [Suspect]
     Active Substance: VINCRISTINE
     Indication: Acute lymphocytic leukaemia
     Dosage: UNK INDUCTION IA PHASE; INTRAVENOUS PUSH
     Route: 042
  20. VINCRISTINE [Suspect]
     Active Substance: VINCRISTINE
     Dosage: UNK REINDUCTION PHASE; INTRAVENOUS PUSH
     Route: 042
  21. DAUNORUBICIN [Suspect]
     Active Substance: DAUNORUBICIN
     Indication: Acute lymphocytic leukaemia
     Dosage: UNK INDUCTION IA PHASE; INTRAVENOUS INFUSION
     Route: 042
  22. ASPARAGINASE [Suspect]
     Active Substance: ASPARAGINASE
     Indication: Acute lymphocytic leukaemia
     Dosage: UNK INDUCTION IA PHASE
     Route: 030
  23. ASPARAGINASE [Suspect]
     Active Substance: ASPARAGINASE
     Dosage: UNK REINDUCTION PHASE
     Route: 030
  24. CYTARABINE [Suspect]
     Active Substance: CYTARABINE
     Indication: Acute lymphocytic leukaemia
     Dosage: UNK INDUCTION IA PHASE
     Route: 037
  25. CYTARABINE [Suspect]
     Active Substance: CYTARABINE
     Dosage: UNK IV INFUSION OF CYTARABINE OVER 1 HR
     Route: 042
  26. CYTARABINE [Suspect]
     Active Substance: CYTARABINE
     Dosage: UNK INDUCTION IB PHASE
     Route: 037
  27. CYTARABINE [Suspect]
     Active Substance: CYTARABINE
     Dosage: UNK CONSOLIDATION PHASE
     Route: 037
  28. CYTARABINE [Suspect]
     Active Substance: CYTARABINE
     Dosage: UNK IV PUSH CYTARABINE
     Route: 042
  29. CYTARABINE [Suspect]
     Active Substance: CYTARABINE
     Dosage: UNK REINDUCTION PHASE
     Route: 037
  30. CYTARABINE [Suspect]
     Active Substance: CYTARABINE
     Dosage: UNK MAINTENANCE PHASE
     Route: 037
  31. CYCLOPHOSPHAMIDE [Suspect]
     Active Substance: CYCLOPHOSPHAMIDE
     Indication: Acute lymphocytic leukaemia
     Dosage: UNK INDUCTION IB PHASE; OVER 1 HOUR; INTRAVENOUS INFUSION
     Route: 042
  32. CYCLOPHOSPHAMIDE [Suspect]
     Active Substance: CYCLOPHOSPHAMIDE
     Dosage: UNK REINDUCTION PHASE; OVER 1 HOUR; INTRAVENOUS INFUSION
     Route: 042
  33. MERCAPTOPURINE [Suspect]
     Active Substance: MERCAPTOPURINE
     Indication: Acute lymphocytic leukaemia
     Dosage: UNK INDUCTION IB PHASE
     Route: 048
  34. MERCAPTOPURINE [Suspect]
     Active Substance: MERCAPTOPURINE
     Dosage: UNK CONSOLIDATION PHASE
     Route: 048
  35. MERCAPTOPURINE [Suspect]
     Active Substance: MERCAPTOPURINE
     Dosage: UNK MAINTENANCE PHASE
     Route: 048
  36. THIOGUANINE [Suspect]
     Active Substance: THIOGUANINE
     Indication: Acute lymphocytic leukaemia
     Dosage: UNK REINDUCTION PHASE
     Route: 048
  37. PEG/L-ASPARAGINASE [Suspect]
     Active Substance: PEGASPARGASE
     Indication: Acute lymphocytic leukaemia
     Dosage: UNK MAINTENANCE PHASE
     Route: 030
  38. LEUCOVORIN [Concomitant]
     Active Substance: LEUCOVORIN
     Indication: Prophylaxis
     Dosage: UNK
     Route: 065

REACTIONS (1)
  - Embolism venous [Unknown]
